FAERS Safety Report 13591806 (Version 2)
Quarter: 2017Q2

REPORT INFORMATION
  Report Type: Spontaneous
  Country: HK (occurrence: HK)
  Receive Date: 20170529
  Receipt Date: 20170606
  Transmission Date: 20170830
  Serious: Yes (Death, Disabling, Other)
  Sender: FDA-Public Use
  Company Number: HK-009507513-1705HKG011655

PATIENT
  Age: 0 Year
  Sex: Female
  Weight: 2 kg

DRUGS (35)
  1. FUROSEMIDE. [Concomitant]
     Active Substance: FUROSEMIDE
     Indication: HYPOALBUMINAEMIA
     Dosage: 1 MG, UNK
     Route: 040
     Dates: start: 20170322
  2. FUROSEMIDE. [Concomitant]
     Active Substance: FUROSEMIDE
     Indication: OLIGURIA
     Dosage: 1 MG, UNK
     Route: 040
     Dates: start: 20170324
  3. FUROSEMIDE. [Concomitant]
     Active Substance: FUROSEMIDE
     Dosage: 2 MG
     Route: 040
     Dates: start: 20170328
  4. SODIUM BICARBONATE. [Suspect]
     Active Substance: SODIUM BICARBONATE
     Indication: HYPOALBUMINAEMIA
     Dosage: 4 ML, UNK
     Route: 040
     Dates: start: 20170328
  5. SODIUM BICARBONATE. [Suspect]
     Active Substance: SODIUM BICARBONATE
     Indication: OLIGURIA
  6. VANCOMYCIN [Suspect]
     Active Substance: VANCOMYCIN
     Dosage: 20 MG,EVERY 24 HOURS; CENTRAL BROVIAC LINE
     Dates: start: 20170324, end: 20170327
  7. CEFTAZIDIME. [Concomitant]
     Active Substance: CEFTAZIDIME
     Indication: SEPSIS
     Dosage: 100 MG, Q12H
     Route: 042
     Dates: start: 20170318, end: 20170327
  8. ALBUMIN HUMAN [Concomitant]
     Active Substance: ALBUMIN HUMAN
     Indication: OEDEMA
     Dosage: 20 ML, (2 DOSES), IV STAT
     Route: 042
     Dates: start: 20170324
  9. FUROSEMIDE. [Concomitant]
     Active Substance: FUROSEMIDE
     Dosage: 1 MG, UNK
     Route: 040
     Dates: start: 20170327
  10. CUBICIN [Suspect]
     Active Substance: DAPTOMYCIN
     Indication: STAPHYLOCOCCAL SEPSIS
     Dosage: 12 MG, Q12H
     Route: 042
     Dates: start: 20170323, end: 20170328
  11. ALBUMIN HUMAN [Concomitant]
     Active Substance: ALBUMIN HUMAN
     Indication: OLIGURIA
  12. ALBUMIN HUMAN [Concomitant]
     Active Substance: ALBUMIN HUMAN
     Indication: METABOLIC ACIDOSIS
     Dosage: 20 ML, IV STAT
     Route: 042
     Dates: start: 20170326
  13. MORPHINE [Concomitant]
     Active Substance: MORPHINE
     Dosage: 05 MCG/KG/HOUR
     Dates: start: 20170325, end: 20170407
  14. OCTREOTIDE. [Concomitant]
     Active Substance: OCTREOTIDE
     Indication: CHYLOTHORAX
     Dosage: 0.5 MG IN 60 ML NS @6.667 MCG/KG/HOUR
     Dates: start: 20170326, end: 20170407
  15. ALBUMIN HUMAN [Concomitant]
     Active Substance: ALBUMIN HUMAN
     Indication: HYPOALBUMINAEMIA
     Dosage: 20 ML, IV STAT
     Route: 042
     Dates: start: 20170323
  16. ALBUMIN HUMAN [Concomitant]
     Active Substance: ALBUMIN HUMAN
     Dosage: 20 ML, IV STAT
     Route: 042
     Dates: start: 20170328
  17. FUROSEMIDE. [Concomitant]
     Active Substance: FUROSEMIDE
     Dosage: 2 MG
     Route: 040
     Dates: start: 20170326
  18. VANCOMYCIN [Suspect]
     Active Substance: VANCOMYCIN
     Indication: STAPHYLOCOCCAL SEPSIS
     Dosage: 20 MG,EVERY 12 HOURS; CENTRAL BROVIAC LINE
     Dates: start: 20170322, end: 20170324
  19. GLOBULIN, IMMUNE [Concomitant]
     Active Substance: HUMAN IMMUNOGLOBULIN G
     Indication: STAPHYLOCOCCAL SEPSIS
     Dosage: 2 G, Q24H, 2 DOSES
     Dates: start: 20170324, end: 20170326
  20. ALBUMIN HUMAN [Concomitant]
     Active Substance: ALBUMIN HUMAN
     Indication: HYPOALBUMINAEMIA
     Dosage: 20 ML, IV STAT
     Route: 042
     Dates: start: 20170322
  21. ALBUMIN HUMAN [Concomitant]
     Active Substance: ALBUMIN HUMAN
     Indication: OEDEMA
     Dosage: 20 ML, IV STAT
     Route: 042
     Dates: start: 20170328
  22. ALBUMIN HUMAN [Concomitant]
     Active Substance: ALBUMIN HUMAN
     Indication: OLIGURIA
     Dosage: 20 ML, IV STAT
     Route: 042
     Dates: start: 20170325
  23. SODIUM BICARBONATE. [Suspect]
     Active Substance: SODIUM BICARBONATE
     Indication: OEDEMA
  24. ESOMEPRAZOLE [Concomitant]
     Active Substance: ESOMEPRAZOLE
     Indication: GASTRITIS
     Dosage: 2 MG, QD
     Route: 042
     Dates: start: 20170305, end: 20170329
  25. MORPHINE [Concomitant]
     Active Substance: MORPHINE
     Indication: SEDATION
     Dosage: 10 MCG/KG/HOUR
     Dates: start: 20170322, end: 20170325
  26. VANCOMYCIN [Suspect]
     Active Substance: VANCOMYCIN
     Dosage: 30 MG, Q8H
     Route: 042
     Dates: start: 20170320, end: 20170321
  27. CAFFEINE, CITRATED [Concomitant]
     Indication: INFANTILE APNOEA
     Dosage: 10 MG, Q24H
     Route: 042
     Dates: start: 20170310, end: 20170323
  28. MILRINONE [Concomitant]
     Active Substance: MILRINONE
     Indication: HYPOTENSION
     Dosage: 0.5 MCG/KG/MIN
     Dates: start: 20170321, end: 20170322
  29. GLOBULIN, IMMUNE [Concomitant]
     Active Substance: HUMAN IMMUNOGLOBULIN G
     Dosage: 2 G, UNK
     Route: 040
     Dates: start: 20170323
  30. ALBUMIN HUMAN [Concomitant]
     Active Substance: ALBUMIN HUMAN
     Indication: METABOLIC ACIDOSIS
  31. ALBUMIN HUMAN [Concomitant]
     Active Substance: ALBUMIN HUMAN
     Dosage: 20 ML, IV STAT
     Route: 042
     Dates: start: 20170327
  32. SODIUM BICARBONATE. [Suspect]
     Active Substance: SODIUM BICARBONATE
     Indication: METABOLIC ACIDOSIS
  33. VANCOMYCIN [Suspect]
     Active Substance: VANCOMYCIN
     Indication: STAPHYLOCOCCAL SEPSIS
     Dosage: 30 MG, Q12H
     Route: 042
     Dates: start: 20170318, end: 20170320
  34. FUROSEMIDE. [Concomitant]
     Active Substance: FUROSEMIDE
     Indication: OEDEMA
     Dosage: 1 MG, UNK
     Route: 040
     Dates: start: 20170323
  35. FUROSEMIDE. [Concomitant]
     Active Substance: FUROSEMIDE
     Indication: METABOLIC ACIDOSIS
     Dosage: 2 MG, (2 DOSES)
     Route: 040
     Dates: start: 20170325

REACTIONS (8)
  - Oliguria [Unknown]
  - Dehydration [Unknown]
  - Acute kidney injury [Fatal]
  - Multiple organ dysfunction syndrome [Fatal]
  - Circulatory collapse [Unknown]
  - Anuria [Not Recovered/Not Resolved]
  - Shock [Unknown]
  - Hypotension [Unknown]

NARRATIVE: CASE EVENT DATE: 2017
